FAERS Safety Report 7125107-X (Version None)
Quarter: 2010Q4

REPORT INFORMATION
  Report Type: 
  Country: None (occurrence: None)
  Receive Date: 20101129
  Receipt Date: 20101025
  Transmission Date: 20110411
  Serious: Yes (Other)
  Sender: FDA-Public Use
  Company Number: US-AMGEN-USASP2010001771

PATIENT

DRUGS (2)
  1. ENBREL [Suspect]
     Indication: RHEUMATOID ARTHRITIS
     Dates: start: 20031101
  2. HUMIRA [Concomitant]

REACTIONS (7)
  - CYANOSIS [None]
  - DYSPNOEA [None]
  - INJECTION SITE PAIN [None]
  - NAUSEA [None]
  - PARAESTHESIA [None]
  - SENSORY DISTURBANCE [None]
  - VOMITING [None]
